FAERS Safety Report 24462188 (Version 1)
Quarter: 2024Q4

REPORT INFORMATION
  Report Type: Spontaneous
  Country: AU (occurrence: AU)
  Receive Date: 20241018
  Receipt Date: 20241018
  Transmission Date: 20250114
  Serious: No
  Sender: ROCHE
  Company Number: AU-ROCHE-3569916

PATIENT
  Age: 38 Year
  Sex: Female
  Weight: 70.0 kg

DRUGS (2)
  1. RITUXIMAB [Suspect]
     Active Substance: RITUXIMAB
     Indication: Lupus nephritis
     Route: 065
  2. OCREVUS [Concomitant]
     Active Substance: OCRELIZUMAB
     Dosage: 300MG INITIAL IV INFUSION FOLLOWED 2 WEEKS LATER?BY A 300MG IV INFUSION.
     Route: 042

REACTIONS (3)
  - Off label use [Unknown]
  - Hypersensitivity [Unknown]
  - Drug specific antibody present [Unknown]
